FAERS Safety Report 7735410-8 (Version None)
Quarter: 2011Q3

REPORT INFORMATION
  Report Type: 
  Country: None (occurrence: None)
  Receive Date: 20110907
  Receipt Date: 20110906
  Transmission Date: 20111222
  Serious: Yes (Hospitalization)
  Sender: FDA-Public Use
  Company Number: CA-BRISTOL-MYERS SQUIBB COMPANY-15945025

PATIENT
  Age: 67 Year
  Sex: Female

DRUGS (10)
  1. CARBOPLATIN [Suspect]
     Indication: NEOPLASM
     Dosage: INTERRUPTED ON 19JUL2011 NO OF COURSES: 02
     Route: 042
     Dates: start: 20110629
  2. HYDROCHLOROTHIAZIDE [Concomitant]
     Dates: start: 20070101
  3. NORVASC [Concomitant]
     Dates: start: 20070101
  4. PACLITAXEL [Suspect]
     Indication: NEOPLASM
     Dosage: INTERRUPTED ON 19JUL2011 NO OF COURSES: 02
     Route: 042
     Dates: start: 20110629
  5. DIOVAN [Concomitant]
     Dates: start: 20070101
  6. PROCHLORPERAZINE [Concomitant]
     Dates: start: 20110701
  7. BMS754807 [Suspect]
     Indication: NEOPLASM
     Dosage: INTERRUPTED ON 30JUL2011 NO OF COURSES: 2
     Route: 048
     Dates: start: 20110630
  8. GLYBURIDE [Concomitant]
     Dates: start: 20110729, end: 20110730
  9. PROCHLORPERAZINE [Concomitant]
     Dates: start: 20110701
  10. COLACE [Concomitant]
     Dates: start: 20110630

REACTIONS (3)
  - DEHYDRATION [None]
  - NEUTROPENIA [None]
  - HYPERGLYCAEMIA [None]
